FAERS Safety Report 10148979 (Version 1)
Quarter: 2014Q2

REPORT INFORMATION
  Report Type: Spontaneous
  Country: US (occurrence: US)
  Receive Date: 20140502
  Receipt Date: 20140502
  Transmission Date: 20141212
  Serious: Yes (Other)
  Sender: FDA-Public Use
  Company Number: US-BRISTOL-MYERS SQUIBB COMPANY-20678835

PATIENT
  Sex: Male

DRUGS (3)
  1. BYETTA [Suspect]
     Dates: start: 200604, end: 200609
  2. JANUVIA [Suspect]
     Dates: start: 200611, end: 200712
  3. JANUMET [Suspect]
     Dates: start: 200806, end: 200811

REACTIONS (1)
  - Pancreatic carcinoma [Unknown]
